FAERS Safety Report 4554589-2 (Version None)
Quarter: 2004Q4

REPORT INFORMATION
  Report Type: 
  Country: None (occurrence: None)
  Receive Date: 20041227
  Receipt Date: 20040830
  Transmission Date: 20050328
  Serious: Yes (Hospitalization, Other)
  Sender: FDA-Public Use
  Company Number: US087934

PATIENT
  Age: 50 Year
  Sex: Male
  Weight: 97.6 kg

DRUGS (14)
  1. ARANESP [Suspect]
     Indication: RENAL FAILURE CHRONIC
     Dosage: 60 MCG, 1 IN 2 WEEKS, SC
     Route: 058
     Dates: start: 20031001
  2. PREDNISONE [Concomitant]
  3. TACROLIMUS [Concomitant]
  4. MYCOPHENOLATE MOFETIL [Concomitant]
  5. ROSIGLITAZONE [Concomitant]
  6. GABAPENTIN [Concomitant]
  7. PANTOPRAZOLE SODIUM [Concomitant]
  8. POTASSIUM CHLORIDE [Concomitant]
  9. MAGNESIUM OXIDE [Concomitant]
  10. ATORVASTATIN CALCIUM [Concomitant]
  11. METOPROLOL TARTRATE [Concomitant]
  12. INSULIN GLARGINE [Concomitant]
  13. ACETYLSALICYLIC ACID SRT [Concomitant]
  14. NIASPAN [Concomitant]

REACTIONS (1)
  - DRUG INEFFECTIVE [None]
